FAERS Safety Report 7522103-5 (Version None)
Quarter: 2011Q2

REPORT INFORMATION
  Report Type: 
  Country: None (occurrence: None)
  Receive Date: 20110603
  Receipt Date: 20110512
  Transmission Date: 20111010
  Serious: No
  Sender: FDA-Public Use
  Company Number: US-B.I. PHARMACEUTICALS,INC./RIDGEFIELD-2011-BP-11240BP

PATIENT
  Sex: Male

DRUGS (3)
  1. PRADAXA [Suspect]
     Indication: ATRIAL FIBRILLATION
     Dosage: 300 MG
     Route: 048
     Dates: start: 20110115
  2. L DOPA [Concomitant]
     Indication: PARKINSON'S DISEASE
     Route: 048
  3. COUMADIN [Concomitant]

REACTIONS (3)
  - DYSPEPSIA [None]
  - SALIVA ALTERED [None]
  - COUGH [None]
